FAERS Safety Report 9161680 (Version 1)
Quarter: 2013Q1

REPORT INFORMATION
  Report Type: Report from Study
  Country: US (occurrence: US)
  Receive Date: 20130314
  Receipt Date: 20130314
  Transmission Date: 20140127
  Serious: Yes (Other)
  Sender: FDA-Public Use
  Company Number: US-009507513-1303USA004532

PATIENT
  Sex: Male

DRUGS (7)
  1. RIBAVIRIN [Suspect]
     Indication: HEPATITIS C
     Dosage: 1000 MG, QD
     Dates: start: 20120330
  2. RIBAVIRIN [Suspect]
     Dosage: 600 MG, QD
  3. RIBAVIRIN [Suspect]
     Dosage: 200 MG, UNK
  4. BOCEPREVIR [Suspect]
     Dosage: UNK, TID
     Dates: start: 20120425
  5. PEGASYS [Suspect]
     Indication: HEPATITIS C
     Dosage: 180 MICROGRAM, QW
     Route: 042
     Dates: start: 20120330
  6. PEGASYS [Suspect]
     Dosage: 135 MICROGRAM, QW
     Route: 042
  7. PEGASYS [Suspect]
     Dosage: 90 MICROGRAM, UNK

REACTIONS (9)
  - Haemoglobin decreased [Unknown]
  - Fatigue [Unknown]
  - Chest discomfort [Unknown]
  - Asthma [Unknown]
  - Anaemia [Unknown]
  - White blood cell count decreased [Unknown]
  - Dry skin [Unknown]
  - Pruritus [Unknown]
  - Red blood cell count decreased [Unknown]
